FAERS Safety Report 5285518-4 (Version None)
Quarter: 2007Q1

REPORT INFORMATION
  Report Type: 
  Country: None (occurrence: None)
  Receive Date: 20070328
  Receipt Date: 20070316
  Transmission Date: 20070707
  Serious: No
  Sender: FDA-Public Use
  Company Number: MC200700248

PATIENT
  Age: 56 Year
  Sex: Female
  Weight: 104.3 kg

DRUGS (1)
  1. ANGIOMAX [Suspect]
     Indication: PERCUTANEOUS CORONARY INTERVENTION
     Dosage: SEE IMAGE

REACTIONS (2)
  - CARDIAC PROCEDURE COMPLICATION [None]
  - CORONARY ARTERY DISSECTION [None]
